FAERS Safety Report 23276542 (Version 2)
Quarter: 2024Q1

REPORT INFORMATION
  Report Type: Spontaneous
  Country: FR (occurrence: None)
  Receive Date: 20231208
  Receipt Date: 20240124
  Transmission Date: 20240410
  Serious: Yes (Hospitalization)
  Sender: FDA-Public Use
  Company Number: 2023A275337

PATIENT
  Age: 79 Year
  Sex: Female

DRUGS (1)
  1. CALQUENCE [Suspect]
     Active Substance: ACALABRUTINIB
     Indication: Chronic lymphocytic leukaemia
     Route: 048
     Dates: start: 202308, end: 20231020

REACTIONS (2)
  - Dyspnoea [Unknown]
  - Haemothorax [Unknown]

NARRATIVE: CASE EVENT DATE: 20231001
